FAERS Safety Report 7357119-5 (Version None)
Quarter: 2011Q1

REPORT INFORMATION
  Report Type: 
  Country: None (occurrence: None)
  Receive Date: 20110311
  Receipt Date: 20110311
  Transmission Date: 20110831
  Serious: Yes (Hospitalization)
  Sender: FDA-Public Use
  Company Number: None

PATIENT
  Age: 87 Year
  Sex: Male
  Weight: 77 kg

DRUGS (3)
  1. WARFARIN SODIUM [Suspect]
     Indication: TRANSIENT ISCHAEMIC ATTACK
     Dosage: 5 MG EVERY DAY PO
     Route: 048
     Dates: start: 19981009, end: 20100828
  2. ASPIRIN [Suspect]
     Indication: CEREBROVASCULAR ACCIDENT
     Dosage: 81 MG EVERY DAY PO
     Route: 048
     Dates: start: 20070713, end: 20100909
  3. ASPIRIN [Suspect]
     Indication: PROPHYLAXIS
     Dosage: 81 MG EVERY DAY PO
     Route: 048
     Dates: start: 20070713, end: 20100909

REACTIONS (2)
  - HAEMORRHAGE [None]
  - GASTROINTESTINAL HAEMORRHAGE [None]
